FAERS Safety Report 7989821 (Version 3)
Quarter: 2013Q1

REPORT INFORMATION
  Report Type: Spontaneous
  Country: US (occurrence: None)
  Receive Date: 20110524
  Receipt Date: 20130222
  Transmission Date: 20140127
  Serious: Yes (Other)
  Sender: FDA-Public Use
  Company Number: 2011-204

PATIENT
  Age: 62 Year
  Sex: Female

DRUGS (5)
  1. PRIALT [Suspect]
     Indication: BONE PAIN
     Dosage: ONCE/HOUR
     Route: 037
     Dates: end: 20110505
  2. MORPHINE SULFATE [Suspect]
     Indication: BONE PAIN
     Dosage: ONCE/HOUR
     Route: 037
     Dates: end: 20110506
  3. CLONIDINE [Suspect]
     Indication: BONE PAIN
     Dosage: ONCE/HOUR
     Route: 037
     Dates: end: 20110506
  4. MSIR(MORPHINE SULFATE) [Concomitant]
  5. OPANA ER [Concomitant]

REACTIONS (8)
  - Drug ineffective [None]
  - Dysaesthesia [None]
  - Hypoaesthesia [None]
  - Tension headache [None]
  - Underdose [None]
  - Visual impairment [None]
  - Speech disorder [None]
  - Hypotension [None]
